FAERS Safety Report 10138710 (Version 1)
Quarter: 2014Q2

REPORT INFORMATION
  Report Type: Spontaneous
  Country: DK (occurrence: IT)
  Receive Date: 20140429
  Receipt Date: 20140429
  Transmission Date: 20141212
  Serious: Yes (Life-Threatening, Hospitalization)
  Sender: FDA-Public Use
  Company Number: IT-FRI-1000066854

PATIENT
  Age: 45 Year
  Sex: Female

DRUGS (2)
  1. ESCITALOPRAM [Suspect]
     Indication: PRODUCT USED FOR UNKNOWN INDICATION
     Dosage: OVERDOSE: 480 MG
     Route: 048
     Dates: start: 20130625, end: 20130625
  2. FUROSEMIDE [Suspect]
     Indication: PRODUCT USED FOR UNKNOWN INDICATION
     Dosage: OVERDOSE: 750 MG
     Route: 048
     Dates: start: 20130625, end: 20130625

REACTIONS (3)
  - Loss of consciousness [Unknown]
  - Respiratory arrest [Unknown]
  - Intentional overdose [Unknown]
